FAERS Safety Report 13857694 (Version 1)
Quarter: 2017Q3

REPORT INFORMATION
  Report Type: Spontaneous
  Country: US (occurrence: US)
  Receive Date: 20170811
  Receipt Date: 20170811
  Transmission Date: 20171127
  Serious: Yes (Other)
  Sender: FDA-Public Use
  Company Number: PHHY2017US116671

PATIENT
  Sex: Female

DRUGS (1)
  1. ICAPS AREDS [Suspect]
     Active Substance: MINERALS\VITAMINS
     Indication: PRODUCT USED FOR UNKNOWN INDICATION
     Dosage: 1 DAY 2 PILLS, 2 DAY 1 PILL
     Route: 048

REACTIONS (2)
  - Dyspepsia [Recovered/Resolved]
  - Haematochezia [Recovered/Resolved]
